FAERS Safety Report 24367066 (Version 2)
Quarter: 2024Q4

REPORT INFORMATION
  Report Type: Spontaneous
  Country: DE (occurrence: DE)
  Receive Date: 20240926
  Receipt Date: 20241025
  Transmission Date: 20250114
  Serious: Yes (Hospitalization, Other)
  Sender: GLAXOSMITHKLINE
  Company Number: DE-GLAXOSMITHKLINE-DE2024EME116758

PATIENT

DRUGS (7)
  1. BENLYSTA [Suspect]
     Active Substance: BELIMUMAB
     Indication: Systemic lupus erythematosus
     Dosage: UNK
     Route: 042
  2. BENLYSTA [Suspect]
     Active Substance: BELIMUMAB
     Dosage: UNK
     Route: 042
  3. ETANERCEPT [Suspect]
     Active Substance: ETANERCEPT
     Indication: Arthropathy
     Dosage: 50 MG, WE
     Route: 058
  4. MYCOPHENOLATE MOFETIL [Concomitant]
     Active Substance: MYCOPHENOLATE MOFETIL
     Indication: Systemic lupus erythematosus
     Dosage: UNK
  5. HYDROXYCHLOROQUINE [Concomitant]
     Active Substance: HYDROXYCHLOROQUINE
     Indication: Product used for unknown indication
     Dosage: 200 MG, QD
  6. MADELEINE [Concomitant]
     Indication: Product used for unknown indication
     Dosage: 500 MG, QD (1 X 500 MG)
  7. MADELEINE [Concomitant]
     Dosage: 500 MG, QD (2 X 500 MG)

REACTIONS (9)
  - Anaphylactic shock [Recovered/Resolved]
  - Mixed connective tissue disease [Unknown]
  - Conjunctival hyperaemia [Unknown]
  - Urticaria [Recovering/Resolving]
  - Flushing [Recovering/Resolving]
  - Blood pressure decreased [Recovering/Resolving]
  - Hypersensitivity [Recovering/Resolving]
  - Expired product administered [Unknown]
  - Drug ineffective [Unknown]
